FAERS Safety Report 10330418 (Version 1)
Quarter: 2014Q3

REPORT INFORMATION
  Report Type: Spontaneous
  Country: US (occurrence: US)
  Receive Date: 20140722
  Receipt Date: 20140722
  Transmission Date: 20150326
  Serious: No
  Sender: FDA-Public Use
  Company Number: US-009507513-1407USA006435

PATIENT
  Age: 50 Year
  Sex: Male

DRUGS (1)
  1. ZETIA [Suspect]
     Active Substance: EZETIMIBE
     Dosage: 1 TABLET DAILY FOR 6 WEEKS
     Route: 048

REACTIONS (1)
  - Muscle spasms [Recovered/Resolved]
